FAERS Safety Report 15427148 (Version 1)
Quarter: 2018Q3

REPORT INFORMATION
  Report Type: Spontaneous
  Country: US (occurrence: US)
  Receive Date: 20180925
  Receipt Date: 20180925
  Transmission Date: 20181010
  Serious: No
  Sender: FDA-Public Use
  Company Number: US-INDIVIOR LIMITED-INDV-110252-2018

PATIENT
  Age: 39 Year
  Sex: Female

DRUGS (3)
  1. SUBOXONE [Suspect]
     Active Substance: BUPRENORPHINE HYDROCHLORIDE\NALOXONE HYDROCHLORIDE
     Indication: DRUG DEPENDENCE
     Dosage: UNK
     Route: 065
  2. BUPRENORPHINE/NALOXONE GENERIC [Suspect]
     Active Substance: BUPRENORPHINE\NALOXONE
     Indication: DRUG DEPENDENCE
     Dosage: 8 MG, DAILY
     Route: 065
     Dates: start: 2011
  3. BUPRENORPHINE/NALOXONE GENERIC [Suspect]
     Active Substance: BUPRENORPHINE\NALOXONE
     Dosage: TAKING ABOUT A QUARTER OF TABLET AND AS NEEDED ABOUT 1 MG
     Route: 065
     Dates: end: 201803

REACTIONS (13)
  - Restless legs syndrome [Unknown]
  - Therapeutic response unexpected [Unknown]
  - Drug withdrawal syndrome [Recovered/Resolved]
  - Decreased appetite [Unknown]
  - Asthenia [Unknown]
  - Wrong technique in product usage process [Recovered/Resolved]
  - Energy increased [Unknown]
  - Intentional underdose [Recovered/Resolved]
  - Hyperhidrosis [Unknown]
  - Nasopharyngitis [Unknown]
  - Malaise [Recovered/Resolved]
  - Drug dependence [Not Recovered/Not Resolved]
  - Sleep disorder [Unknown]
